FAERS Safety Report 21942807 (Version 1)
Quarter: 2023Q1

REPORT INFORMATION
  Report Type: Spontaneous
  Country: US (occurrence: US)
  Receive Date: 20230202
  Receipt Date: 20230202
  Transmission Date: 20230417
  Serious: Yes (Other)
  Sender: FDA-Public Use
  Company Number: US-BIOVITRUM-2023US01659

PATIENT
  Sex: Male
  Weight: 7 kg

DRUGS (7)
  1. SYNAGIS [Suspect]
     Active Substance: PALIVIZUMAB
     Indication: Chronic respiratory disease
  2. BUDESONIDE [Concomitant]
     Active Substance: BUDESONIDE
     Dosage: 0.25MG/2ML AMPUL-NEB
  3. VALIUM [Concomitant]
     Active Substance: DIAZEPAM
     Dosage: TABLET
  4. ALBUTEROL SULFATE [Concomitant]
     Active Substance: ALBUTEROL SULFATE
  5. VIGABATRIN [Concomitant]
     Active Substance: VIGABATRIN
  6. IRON\VITAMINS [Concomitant]
     Active Substance: IRON\VITAMINS
  7. PANTOPRAZOLE SODIUM [Concomitant]
     Active Substance: PANTOPRAZOLE SODIUM

REACTIONS (1)
  - Seizure [Unknown]
